FAERS Safety Report 7391137-6 (Version None)
Quarter: 2011Q1

REPORT INFORMATION
  Report Type: 
  Country: None (occurrence: None)
  Receive Date: 20110324
  Receipt Date: 20110311
  Transmission Date: 20110831
  Serious: Yes (Hospitalization)
  Sender: FDA-Public Use
  Company Number: 2011001171

PATIENT
  Age: 80 Year
  Sex: Male

DRUGS (2)
  1. TARCEVA [Suspect]
     Indication: PRODUCT USED FOR UNKNOWN INDICATION
     Dosage: (100 MG,DAILY),ORAL
     Route: 048
     Dates: start: 20110216
  2. PLAVIX [Concomitant]

REACTIONS (2)
  - VASCULAR OCCLUSION [None]
  - DRUG INTERACTION [None]
